FAERS Safety Report 7434563-9 (Version None)
Quarter: 2011Q2

REPORT INFORMATION
  Report Type: 
  Country: None (occurrence: None)
  Receive Date: 20110425
  Receipt Date: 20110419
  Transmission Date: 20111010
  Serious: No
  Sender: FDA-Public Use
  Company Number: US-B.I. PHARMACEUTICALS,INC./RIDGEFIELD-2011-BP-03774BP

PATIENT
  Sex: Female

DRUGS (20)
  1. FENTANYL-100 [Concomitant]
     Indication: BACK PAIN
  2. POTASSIUM [Concomitant]
     Indication: PROPHYLAXIS
  3. FUROSEMIDE [Concomitant]
     Indication: SWELLING
  4. PRADAXA [Suspect]
     Indication: ATRIAL FIBRILLATION
     Dosage: 300 MG
     Route: 048
     Dates: start: 20101101
  5. ZOLPIDEM [Concomitant]
     Indication: SLEEP DISORDER
  6. ZETIA [Concomitant]
     Indication: BLOOD CHOLESTEROL INCREASED
  7. PRAVASTATIN [Concomitant]
     Indication: BLOOD CHOLESTEROL INCREASED
  8. LORAZEPAM [Concomitant]
     Indication: NERVOUSNESS
  9. HYDROCORTISONE CREAM [Concomitant]
     Indication: VULVOVAGINAL DRYNESS
  10. OXYCONTIN [Concomitant]
     Indication: BACK PAIN
  11. PRILOSEC OTC [Concomitant]
     Indication: FLATULENCE
  12. PRADAXA [Suspect]
     Indication: PROTHROMBIN LEVEL ABNORMAL
  13. IRON [Concomitant]
     Indication: PROPHYLAXIS
  14. DIGOXIN [Concomitant]
     Indication: ATRIAL FIBRILLATION
  15. ISOSORBIDE DINITRATE [Concomitant]
     Indication: ATRIAL FIBRILLATION
  16. XELON PATCH [Concomitant]
     Indication: MEMORY IMPAIRMENT
  17. LIDODERM [Concomitant]
     Indication: BACK PAIN
  18. NORTRIPTYLINE [Concomitant]
     Indication: HERPES ZOSTER
  19. REMIDEX [Concomitant]
     Indication: BREAST CANCER
  20. METOPROLOL [Concomitant]
     Indication: HYPERTENSION

REACTIONS (4)
  - PAIN IN EXTREMITY [None]
  - MUSCLE SPASMS [None]
  - AGITATION [None]
  - ODYNOPHAGIA [None]
